FAERS Safety Report 24196741 (Version 1)
Quarter: 2024Q3

REPORT INFORMATION
  Report Type: Spontaneous
  Country: JP (occurrence: JP)
  Receive Date: 20240810
  Receipt Date: 20240810
  Transmission Date: 20241017
  Serious: Yes (Hospitalization)
  Sender: ROCHE
  Company Number: JP-CHUGAI-2024027359

PATIENT
  Age: 6 Decade
  Sex: Female

DRUGS (2)
  1. PHESGO [Suspect]
     Active Substance: HYALURONIDASE-ZZXF\PERTUZUMAB\TRASTUZUMAB
     Indication: Breast cancer
     Dosage: UNK
     Route: 050
  2. DOCETAXEL [Suspect]
     Active Substance: DOCETAXEL\DOCETAXEL ANHYDROUS
     Indication: Breast cancer
     Dosage: UNK
     Route: 042

REACTIONS (2)
  - Pneumocystis jirovecii pneumonia [Recovering/Resolving]
  - Febrile neutropenia [Recovering/Resolving]
